FAERS Safety Report 8408356 (Version 2)
Quarter: 2013Q2

REPORT INFORMATION
  Report Type: Spontaneous
  Country: US (occurrence: None)
  Receive Date: 20111227
  Receipt Date: 20120426
  Transmission Date: 20140414
  Serious: Yes (Other)
  Sender: FDA-Public Use
  Company Number: PHEH2011US05415

PATIENT
  Age: 23 Year
  Sex: Male
  Weight: 81.6 kg

DRUGS (1)
  1. GILENYA [Suspect]
     Indication: MULTIPLE SCLEROSIS
     Dosage: 0.5 MG, QD, ORAL
     Route: 048
     Dates: start: 20110922

REACTIONS (10)
  - Chromatopsia [None]
  - PAIN [None]
  - NAUSEA [None]
  - DIZZINESS [None]
  - Sinusitis [None]
  - Epistaxis [None]
  - Chills [None]
  - Oropharyngeal pain [None]
  - Cough [None]
  - Dizziness [None]
